FAERS Safety Report 5191158-8 (Version None)
Quarter: 2006Q4

REPORT INFORMATION
  Report Type: 
  Country: None (occurrence: None)
  Receive Date: 20061226
  Receipt Date: 20061218
  Transmission Date: 20070319
  Serious: Yes (Hospitalization)
  Sender: FDA-Public Use
  Company Number: FR-AVENTIS-200614461FR

PATIENT
  Age: 85 Year
  Sex: Female
  Weight: 60 kg

DRUGS (9)
  1. LASILIX                            /00032601/ [Suspect]
     Indication: DRUG USE FOR UNKNOWN INDICATION
     Route: 048
     Dates: end: 20061117
  2. TRIATEC                            /00885601/ [Suspect]
     Indication: DRUG USE FOR UNKNOWN INDICATION
     Route: 048
  3. ALDACTAZINE [Suspect]
     Indication: DRUG USE FOR UNKNOWN INDICATION
     Route: 048
     Dates: end: 20061117
  4. DIPIPERON [Concomitant]
     Route: 048
  5. PREVISCAN                          /00789001/ [Concomitant]
     Route: 048
  6. IMOVANE [Concomitant]
     Route: 048
     Dates: end: 20061117
  7. TRAMADOL HCL [Concomitant]
     Route: 048
  8. SERETIDE [Concomitant]
  9. MOTILYO [Concomitant]
     Route: 048

REACTIONS (4)
  - DEHYDRATION [None]
  - DRUG INTERACTION [None]
  - HYPOTENSION [None]
  - RENAL FAILURE ACUTE [None]
